FAERS Safety Report 20131872 (Version 1)
Quarter: 2021Q4

REPORT INFORMATION
  Report Type: Spontaneous
  Country: None (occurrence: US)
  Receive Date: 20211130
  Receipt Date: 20211130
  Transmission Date: 20220303
  Serious: Yes (Hospitalization)
  Sender: FDA-Public Use
  Company Number: US-Nexgen Pharma, Inc.-2122494

PATIENT
  Age: 18 Year
  Sex: Male

DRUGS (3)
  1. CHENODAL [Suspect]
     Active Substance: CHENODIOL
     Indication: Glycogen storage disorder
     Route: 048
     Dates: start: 20210228
  2. DEPAKOTE [Concomitant]
     Active Substance: DIVALPROEX SODIUM
  3. ZONISAMIDE [Concomitant]
     Active Substance: ZONISAMIDE

REACTIONS (6)
  - Seizure [Unknown]
  - Hepatic enzyme abnormal [Unknown]
  - Haematochezia [Unknown]
  - Chromaturia [Unknown]
  - Hepatic fibrosis [Unknown]
  - Kidney fibrosis [Unknown]
